FAERS Safety Report 23712744 (Version 2)
Quarter: 2024Q3

REPORT INFORMATION
  Report Type: Report from Study
  Country: JP (occurrence: JP)
  Receive Date: 20240405
  Receipt Date: 20240930
  Transmission Date: 20241017
  Serious: Yes (Death, Life-Threatening, Hospitalization)
  Sender: BAYER
  Company Number: JP-BAYER-2024A048498

PATIENT
  Age: 14 Year
  Sex: Male
  Weight: 57.4 kg

DRUGS (8)
  1. VITRAKVI [Suspect]
     Active Substance: LAROTRECTINIB
     Indication: NTRK gene fusion cancer
     Dosage: 100 MG, BID
     Dates: start: 20230913, end: 20231207
  2. TRAMADOL HYDROCHLORIDE [Suspect]
     Active Substance: TRAMADOL HYDROCHLORIDE
     Indication: Pain
     Dosage: 100MG
     Dates: start: 20230905, end: 20230918
  3. TRAMADOL HYDROCHLORIDE [Suspect]
     Active Substance: TRAMADOL HYDROCHLORIDE
     Indication: Pain
     Dosage: 125MG
     Dates: start: 20230919, end: 20231128
  4. TRAMADOL HYDROCHLORIDE [Suspect]
     Active Substance: TRAMADOL HYDROCHLORIDE
     Indication: Pain
     Dosage: 225MG
     Dates: start: 20231129, end: 20231215
  5. LOXOPROFEN SODIUM [Suspect]
     Active Substance: LOXOPROFEN SODIUM
     Indication: Pain
     Dosage: 180MG
     Dates: start: 20230905, end: 20231215
  6. FENTANYL [Suspect]
     Active Substance: FENTANYL\FENTANYL CITRATE
     Indication: Pain
     Dosage: 0.38MG
     Dates: start: 20231211, end: 20240115
  7. IFOSFAMIDE [Suspect]
     Active Substance: IFOSFAMIDE
     Indication: Chemotherapy single agent systemic
     Dosage: 4900MG
     Dates: start: 20231208, end: 20231212
  8. IFOSFAMIDE [Suspect]
     Active Substance: IFOSFAMIDE
     Indication: Chemotherapy single agent systemic
     Dosage: 4700MG
     Dates: start: 20240106, end: 20240110

REACTIONS (3)
  - NTRK gene fusion cancer [Fatal]
  - Anaemia [Not Recovered/Not Resolved]
  - Pain [Not Recovered/Not Resolved]

NARRATIVE: CASE EVENT DATE: 20230913
